FAERS Safety Report 4680123-2 (Version None)
Quarter: 2005Q2

REPORT INFORMATION
  Report Type: 
  Country: None (occurrence: None)
  Receive Date: 20050531
  Receipt Date: 20050520
  Transmission Date: 20051028
  Serious: Yes (Other)
  Sender: FDA-Public Use
  Company Number: 2005-05-0171

PATIENT
  Age: 1 Year
  Sex: Female

DRUGS (2)
  1. INTRON A [Suspect]
     Indication: HAEMANGIOMA
     Dosage: 1.3 MIU QD SUBCUTANEOUS
     Route: 058
     Dates: start: 20010219, end: 20011018
  2. IBUPROFEN [Concomitant]

REACTIONS (3)
  - DIPLEGIA [None]
  - SPASTIC PARALYSIS [None]
  - TALIPES [None]
